FAERS Safety Report 14273556 (Version 1)
Quarter: 2017Q4

REPORT INFORMATION
  Report Type: Spontaneous
  Country: US (occurrence: US)
  Receive Date: 20171212
  Receipt Date: 20171212
  Transmission Date: 20180321
  Serious: Yes (Other)
  Sender: FDA-Public Use
  Company Number: US-ELI_LILLY_AND_COMPANY-US201711013158

PATIENT
  Age: 61 Year
  Sex: Male

DRUGS (2)
  1. CIALIS [Suspect]
     Active Substance: TADALAFIL
     Indication: PROSTATECTOMY
  2. CIALIS [Suspect]
     Active Substance: TADALAFIL
     Indication: DISTURBANCE IN SEXUAL AROUSAL
     Dosage: 20 MG, UNKNOWN
     Route: 048
     Dates: start: 2012

REACTIONS (3)
  - Drug abuse [Unknown]
  - Prostate cancer [Recovered/Resolved]
  - Off label use [Unknown]

NARRATIVE: CASE EVENT DATE: 2012
